FAERS Safety Report 6166238-0 (Version None)
Quarter: 2009Q2

REPORT INFORMATION
  Report Type: 
  Country: None (occurrence: None)
  Receive Date: 20090424
  Receipt Date: 20090416
  Transmission Date: 20091009
  Serious: Yes (Other)
  Sender: FDA-Public Use
  Company Number: PHHY2009FR15001

PATIENT
  Sex: Female

DRUGS (2)
  1. FORADIL / FOR 258A / CGP 25827 [Suspect]
  2. FORADIL / FOR 258A / CGP 25827 [Suspect]
     Dosage: ONCE/SINGLE
     Route: 048

REACTIONS (1)
  - INCORRECT ROUTE OF DRUG ADMINISTRATION [None]
